FAERS Safety Report 5395760-X (Version None)
Quarter: 2007Q3

REPORT INFORMATION
  Report Type: 
  Country: None (occurrence: None)
  Receive Date: 20070724
  Receipt Date: 20070712
  Transmission Date: 20080115
  Serious: Yes (Hospitalization, Other)
  Sender: FDA-Public Use
  Company Number: US-PFIZER INC-2006105725

PATIENT
  Sex: Male
  Weight: 90.7 kg

DRUGS (7)
  1. CELEBREX [Suspect]
     Indication: PAIN
     Route: 048
     Dates: start: 20031101, end: 20040201
  2. BEXTRA [Suspect]
     Indication: PAIN
     Route: 048
     Dates: start: 20011101, end: 20031101
  3. VIOXX [Suspect]
     Indication: MUSCULOSKELETAL PAIN
     Route: 048
     Dates: start: 20020101, end: 20031101
  4. ASPIRIN [Concomitant]
  5. ACETAMINOPHEN [Concomitant]
  6. OXYCODONE HCL [Concomitant]
  7. MORPHINE [Concomitant]

REACTIONS (2)
  - CEREBROVASCULAR ACCIDENT [None]
  - MYOCARDIAL INFARCTION [None]
